FAERS Safety Report 14339772 (Version 1)
Quarter: 2017Q4

REPORT INFORMATION
  Report Type: Report from Study
  Country: TR (occurrence: TR)
  Receive Date: 20171230
  Receipt Date: 20171230
  Transmission Date: 20180321
  Serious: Yes (Death, Life-Threatening, Other)
  Sender: FDA-Public Use
  Company Number: TR-BAUSCH-BL-2017-035353

PATIENT
  Age: 54 Year
  Sex: Male

DRUGS (12)
  1. TACROLIMUS. [Concomitant]
     Active Substance: TACROLIMUS
     Route: 061
  2. NYSTATIN. [Concomitant]
     Active Substance: NYSTATIN
     Indication: PROPHYLAXIS
     Route: 048
  3. PREDNISOLONE. [Suspect]
     Active Substance: PREDNISOLONE
     Indication: IMMUNOSUPPRESSION
     Dosage: WEEKS
     Route: 065
     Dates: start: 20130823, end: 20130830
  4. PREDNISOLONE. [Suspect]
     Active Substance: PREDNISOLONE
     Dates: start: 20130830, end: 2014
  5. MYCOPHENOLATE MOFETIL. [Suspect]
     Active Substance: MYCOPHENOLATE MOFETIL
     Indication: IMMUNOSUPPRESSION
     Route: 065
  6. HEPARIN [Concomitant]
     Active Substance: HEPARIN SODIUM
     Indication: PROPHYLAXIS
     Route: 058
  7. SULFADOXINE, PYRIMETHAMINE [Concomitant]
     Indication: PROPHYLAXIS
  8. TACROLIMUS. [Concomitant]
     Active Substance: TACROLIMUS
     Indication: SKIN GRAFT REJECTION
     Dosage: INCREASE IN TACROLIMUS DRUG DOSAGE
     Route: 061
  9. ANTI-THYMOCYTE GLOBULIN (RABBIT) NOS [Concomitant]
     Active Substance: LAPINE T-LYMPHOCYTE IMMUNE GLOBULIN
     Indication: PRODUCT USED FOR UNKNOWN INDICATION
  10. PREDNISOLONE. [Suspect]
     Active Substance: PREDNISOLONE
     Dates: start: 2014, end: 2014
  11. VALACYCLOVIR [Concomitant]
     Active Substance: VALACYCLOVIR HYDROCHLORIDE
     Indication: PROPHYLAXIS
     Route: 048
  12. PROGRAF [Suspect]
     Active Substance: TACROLIMUS\TACROLIMUS ANHYDROUS
     Indication: IMMUNOSUPPRESSION
     Dosage: TAPERED TO 7-10 NG/ML 6 MONTHS POSTOPERATIVELY
     Route: 065
     Dates: start: 2013

REACTIONS (4)
  - Post transplant lymphoproliferative disorder [Fatal]
  - Squamous cell carcinoma [Fatal]
  - Cerebral aspergillosis [Fatal]
  - Opportunistic infection [Fatal]
